FAERS Safety Report 23098448 (Version 2)
Quarter: 2023Q4

REPORT INFORMATION
  Report Type: Spontaneous
  Country: JP (occurrence: JP)
  Receive Date: 20231023
  Receipt Date: 20231201
  Transmission Date: 20240110
  Serious: Yes (Other)
  Sender: FDA-Public Use
  Company Number: JP-PFIZER INC-PV202300173725

PATIENT
  Age: 60 Year
  Sex: Female
  Weight: 31 kg

DRUGS (2)
  1. FOSPHENYTOIN SODIUM [Suspect]
     Active Substance: FOSPHENYTOIN SODIUM
     Indication: Status epilepticus
     Dosage: 450 MG, 1X/DAY(450 MG,1 D)
     Route: 042
     Dates: start: 20231013, end: 20231013
  2. FOSPHENYTOIN SODIUM [Suspect]
     Active Substance: FOSPHENYTOIN SODIUM
     Dosage: 150 MG, 1X/DAY (150 MG,1 D)
     Route: 042
     Dates: start: 20231014, end: 20231017

REACTIONS (2)
  - Therapeutic product effect incomplete [Unknown]
  - Anticonvulsant drug level below therapeutic [Unknown]
